FAERS Safety Report 6243086-4 (Version None)
Quarter: 2009Q2

REPORT INFORMATION
  Report Type: 
  Country: None (occurrence: None)
  Receive Date: 20090624
  Receipt Date: 20090615
  Transmission Date: 20091009
  Serious: Yes (Hospitalization)
  Sender: FDA-Public Use
  Company Number: US-AMGEN-COG347102

PATIENT
  Sex: Female

DRUGS (7)
  1. ENBREL [Suspect]
     Indication: RHEUMATOID ARTHRITIS
     Route: 058
     Dates: start: 20030101
  2. METOPROLOL SUCCINATE [Concomitant]
  3. GABAPENTIN [Concomitant]
  4. ACTONEL [Concomitant]
  5. DIOVAN [Concomitant]
  6. LOVASTATIN [Concomitant]
  7. LISINOPRIL [Concomitant]

REACTIONS (5)
  - BLADDER PROLAPSE [None]
  - INFECTION [None]
  - RENAL FAILURE [None]
  - URINARY TRACT INFECTION [None]
  - WHITE BLOOD CELL COUNT DECREASED [None]
